FAERS Safety Report 4392304-6 (Version None)
Quarter: 2004Q3

REPORT INFORMATION
  Report Type: 
  Country: None (occurrence: None)
  Receive Date: 20040702
  Receipt Date: 20040304
  Transmission Date: 20050211
  Serious: No
  Sender: FDA-Public Use
  Company Number: 2004UW04143

PATIENT
  Age: 68 Year
  Sex: Male
  Weight: 81.6475 kg

DRUGS (2)
  1. CRESTOR [Suspect]
     Dosage: 10 MG DAILY
  2. PROTONIX ^WYETH-AYERST^ [Concomitant]

REACTIONS (2)
  - LETHARGY [None]
  - MOOD ALTERED [None]
